FAERS Safety Report 6828730-2 (Version None)
Quarter: 2010Q3

REPORT INFORMATION
  Report Type: 
  Country: None (occurrence: None)
  Receive Date: 20100709
  Receipt Date: 20070216
  Transmission Date: 20110219
  Serious: No
  Sender: FDA-Public Use
  Company Number: US-PFIZER INC-2007013358

PATIENT
  Sex: Male

DRUGS (7)
  1. CHANTIX [Suspect]
     Indication: SMOKING CESSATION THERAPY
     Dates: start: 20070201
  2. RITALIN [Concomitant]
  3. ZYPREXA [Concomitant]
  4. LEXAPRO [Concomitant]
  5. DEPAKOTE [Concomitant]
     Indication: SCHIZOAFFECTIVE DISORDER
  6. DEPAKOTE [Concomitant]
     Indication: BIPOLAR DISORDER
  7. ATIVAN [Concomitant]
     Indication: POST-TRAUMATIC STRESS DISORDER

REACTIONS (2)
  - ANXIETY [None]
  - FEAR [None]
